FAERS Safety Report 19065123 (Version 3)
Quarter: 2021Q2

REPORT INFORMATION
  Report Type: Spontaneous
  Country: JP (occurrence: JP)
  Receive Date: 20210327
  Receipt Date: 20210517
  Transmission Date: 20210717
  Serious: Yes (Death, Hospitalization)
  Sender: FDA-Public Use
  Company Number: JP-009507513-2103JPN001951J

PATIENT
  Age: 70 Year
  Sex: Male
  Weight: 58 kg

DRUGS (1)
  1. KEYTRUDA [Suspect]
     Active Substance: PEMBROLIZUMAB
     Indication: LUNG ADENOCARCINOMA STAGE IV
     Dosage: 200 MILLIGRAM
     Route: 041

REACTIONS (1)
  - Lung disorder [Fatal]
